FAERS Safety Report 4682471-9 (Version None)
Quarter: 2005Q2

REPORT INFORMATION
  Report Type: 
  Country: None (occurrence: None)
  Receive Date: 20050606
  Receipt Date: 20040924
  Transmission Date: 20051028
  Serious: Yes (Other)
  Sender: FDA-Public Use
  Company Number: BR-ROCHE-381571

PATIENT
  Sex: Male

DRUGS (2)
  1. ROACUTAN [Suspect]
     Indication: ACNE
     Route: 048
  2. ROACUTAN [Suspect]
     Dosage: START DATE REPORTED AS 2005.
     Route: 048

REACTIONS (2)
  - ACNE [None]
  - FACIAL PALSY [None]
